FAERS Safety Report 9813073 (Version 2)
Quarter: 2014Q2

REPORT INFORMATION
  Report Type: Report from Study
  Country: CZ (occurrence: CZ)
  Receive Date: 20140113
  Receipt Date: 20140407
  Transmission Date: 20141212
  Serious: Yes (Hospitalization)
  Sender: FDA-Public Use
  Company Number: CZ-ABBVIE-14P-217-1187021-00

PATIENT
  Age: 42 Year
  Sex: Female
  Weight: 84 kg

DRUGS (4)
  1. HUMIRA [Suspect]
     Indication: RHEUMATOID ARTHRITIS
     Route: 058
     Dates: start: 20080530
  2. MEDROL [Concomitant]
     Indication: RHEUMATOID ARTHRITIS
     Route: 048
  3. NIMESIL [Concomitant]
     Indication: RHEUMATOID ARTHRITIS
     Route: 048
  4. PRESTARIUM [Concomitant]
     Indication: HYPERTENSION
     Route: 048
     Dates: start: 201311

REACTIONS (1)
  - Endometrial hyperplasia [Recovered/Resolved]
